FAERS Safety Report 7135737-7 (Version None)
Quarter: 2010Q4

REPORT INFORMATION
  Report Type: 
  Country: None (occurrence: None)
  Receive Date: 20101203
  Receipt Date: 20101124
  Transmission Date: 20110411
  Serious: Yes (Other)
  Sender: FDA-Public Use
  Company Number: JP-PFIZER INC-2010157248

PATIENT
  Age: 57 Year
  Sex: Male

DRUGS (7)
  1. LYRICA [Suspect]
     Dosage: 150 MG/DAY, FREQUENCY UNKNOWN
     Route: 048
     Dates: start: 20100816, end: 20100829
  2. LYRICA [Suspect]
     Dosage: 300 MG/DAY, FREQUENCY UNKNOWN
     Route: 048
     Dates: start: 20100830, end: 20100926
  3. LYRICA [Suspect]
     Dosage: 350 MG/DAY, FREQUENCY UNKNOWN
     Route: 048
     Dates: start: 20100927, end: 20101011
  4. LYRICA [Suspect]
     Dosage: 400 MG/DAY, FREQUENCY UNKNOWN
     Route: 048
     Dates: start: 20101012, end: 20101122
  5. PAROXETINE [Concomitant]
     Dosage: 40 MG/DAY, FREQUENCY UNKNOWN
     Route: 048
     Dates: start: 20100419
  6. CLONAZEPAM [Concomitant]
     Dosage: 2 MG/DAY, FREQUENCY UNKNOWN
     Route: 048
     Dates: start: 20100419
  7. LENDORMIN [Concomitant]
     Dosage: UNK
     Route: 048
     Dates: start: 20100419

REACTIONS (5)
  - GAMMA-GLUTAMYLTRANSFERASE INCREASED [None]
  - HEPATIC FUNCTION ABNORMAL [None]
  - MALAISE [None]
  - OEDEMA [None]
  - WEIGHT INCREASED [None]
